FAERS Safety Report 5454454-2 (Version None)
Quarter: 2007Q3

REPORT INFORMATION
  Report Type: 
  Country: None (occurrence: None)
  Receive Date: 20070917
  Receipt Date: 20060928
  Transmission Date: 20080115
  Serious: Yes (Hospitalization)
  Sender: FDA-Public Use
  Company Number: US-ASTRAZENECA-2006UW18968

PATIENT
  Age: 26 Year
  Sex: Male

DRUGS (3)
  1. SEROQUEL [Suspect]
     Indication: BIPOLAR DISORDER
     Route: 048
     Dates: start: 20060816
  2. SEROQUEL [Suspect]
     Route: 048
     Dates: start: 20060727, end: 20060816
  3. SEROQUEL [Suspect]
     Route: 048
     Dates: start: 20060713, end: 20060727

REACTIONS (1)
  - PRIAPISM [None]
